FAERS Safety Report 11944590 (Version 1)
Quarter: 2016Q1

REPORT INFORMATION
  Report Type: Report from Study
  Country: KR (occurrence: KR)
  Receive Date: 20160125
  Receipt Date: 20160125
  Transmission Date: 20160526
  Serious: Yes (Hospitalization)
  Sender: FDA-Public Use
  Company Number: KR-ROCHE-1204038

PATIENT
  Age: 60 Year
  Sex: Female
  Weight: 65.95 kg

DRUGS (22)
  1. ULTRACET [Concomitant]
     Active Substance: ACETAMINOPHEN\TRAMADOL HYDROCHLORIDE
     Dosage: DRUG REPORTED AS ULTRACET TAB
     Route: 048
     Dates: start: 20130122, end: 20130211
  2. CURAN [Concomitant]
     Dosage: 300MG HS PO
     Route: 065
     Dates: start: 20130325, end: 20130422
  3. VINCRISTINE [Suspect]
     Active Substance: VINCRISTINE
     Indication: DIFFUSE LARGE B-CELL LYMPHOMA
     Dosage: DOSE OF LAST VINCRISTINE TAKEN: 2 MG, DATE OF MOST RECENT DOSE OF VINCRISTINE PRIOR TO AE ONSET: 12/
     Route: 040
     Dates: start: 20120904
  4. ZOVIRAX [Concomitant]
     Active Substance: ACYCLOVIR
     Indication: HERPES ZOSTER
     Dosage: DRUG REPORTED AS ZOVIRAX TAB
     Route: 048
     Dates: start: 20130112, end: 20130211
  5. DEXTROSE. [Concomitant]
     Active Substance: DEXTROSE
     Route: 065
     Dates: start: 20130319, end: 20130324
  6. DIFLUCAN [Concomitant]
     Active Substance: FLUCONAZOLE
     Dosage: 400MG QD PO
     Route: 048
     Dates: start: 20130401, end: 20130411
  7. PREDNISONE. [Suspect]
     Active Substance: PREDNISONE
     Indication: DIFFUSE LARGE B-CELL LYMPHOMA
     Dosage: DOSE OF LAST PREDNISONE TAKEN: 100 MG, DATE OF MOST RECENT DOSE OF PREDNISONE PRIOR TO AE ONSET: 16/
     Route: 048
     Dates: start: 20120904
  8. EMEND [Concomitant]
     Active Substance: APREPITANT
     Indication: PROPHYLAXIS
     Dosage: DRUG REPORTED AS EMEND CAP
     Route: 048
     Dates: start: 20120904
  9. SODIUM BICARBONATE GARGLE [Concomitant]
     Indication: PROPHYLAXIS
     Route: 065
     Dates: start: 20120903
  10. GASTER (SOUTH KOREA) [Concomitant]
     Dosage: 20MG 1VIA IVS BID)
     Route: 042
     Dates: start: 20130318, end: 20130324
  11. DEXTROSE. [Concomitant]
     Active Substance: DEXTROSE
     Dosage: 10%/NA/K-2 INJ(1000ML 1BAG IV?60CC/HR Q17HR)
     Route: 042
     Dates: start: 20130318, end: 20130318
  12. GABAPENTIN. [Concomitant]
     Active Substance: GABAPENTIN
     Dosage: 300MG 1.00 CAP?TID PO
     Route: 048
     Dates: start: 20130212, end: 20130304
  13. CYCLOPHOSPHAMIDE. [Suspect]
     Active Substance: CYCLOPHOSPHAMIDE
     Indication: DIFFUSE LARGE B-CELL LYMPHOMA
     Dosage: DOSE OF LAST CYCLOPHOSPHAMIDE TAKEN: 1300 MG, DATE OF MOST RECENT DOSE OF CYCLOPHOSPHAMIDE PRIOR TO
     Route: 042
     Dates: start: 20120904
  14. ZANTAC TABS [Concomitant]
     Indication: PROPHYLAXIS
     Route: 048
     Dates: start: 20120904
  15. NEURONTIN (SOUTH KOREA) [Concomitant]
     Indication: NEURALGIA
     Dosage: DRUG REPORTED AS NEURONTIN CAP
     Route: 048
     Dates: start: 20130122, end: 20130211
  16. EMEND [Concomitant]
     Active Substance: APREPITANT
     Dosage: DRUG REPORTED AS EMEND CAP
     Route: 048
     Dates: start: 20120905
  17. ZOVIRAX [Concomitant]
     Active Substance: ACYCLOVIR
     Indication: PROPHYLAXIS
     Route: 048
     Dates: start: 20130212, end: 20130304
  18. OBINUTUZUMAB [Suspect]
     Active Substance: OBINUTUZUMAB
     Indication: DIFFUSE LARGE B-CELL LYMPHOMA
     Dosage: VOLUME OF LAST OBINUTUZUMAB TAKEN: 1000 ML, DOSE CONCENTRATION OF LAST OBINUTUZUMAB TAKEN: 4 MG/ML,
     Route: 042
     Dates: start: 20120904
  19. DOXORUBICIN [Suspect]
     Active Substance: DOXORUBICIN
     Indication: DIFFUSE LARGE B-CELL LYMPHOMA
     Dosage: DOSE OF LAST DOXORUBICIN TAKEN: 86 MG, DATE OF MOST RECENT DOSE OF DOXORUBICIN PRIOR TO AE ONSET: 12
     Route: 042
     Dates: start: 20120904
  20. ALOXI [Concomitant]
     Active Substance: PALONOSETRON HYDROCHLORIDE
     Indication: PROPHYLAXIS
     Dosage: DRUG REPORTED AS ALOXI INJ
     Route: 042
     Dates: start: 20120904
  21. MACPERAN [Concomitant]
     Indication: NAUSEA
     Dosage: DRUG REPORTED AS MACPERAN TAB
     Route: 048
     Dates: start: 20121006
  22. NEURONTIN (SOUTH KOREA) [Concomitant]
     Indication: PROPHYLAXIS
     Route: 048
     Dates: start: 20130212

REACTIONS (1)
  - Pneumonitis [Recovered/Resolved]

NARRATIVE: CASE EVENT DATE: 20130302
